FAERS Safety Report 9924445 (Version 11)
Quarter: 2014Q4

REPORT INFORMATION
  Report Type: Report from Study
  Country: BR (occurrence: BR)
  Receive Date: 20140226
  Receipt Date: 20141027
  Transmission Date: 20150529
  Serious: Yes (Hospitalization)
  Sender: FDA-Public Use
  Company Number: BR-SANOFI-AVENTIS-2013SA077241

PATIENT
  Age: 55 Year
  Sex: Female
  Weight: 90 kg

DRUGS (22)
  1. LANTUS SOLOSTAR [Suspect]
     Active Substance: INSULIN GLARGINE
     Indication: TYPE 2 DIABETES MELLITUS
     Route: 058
  2. VENALOT [Concomitant]
     Active Substance: COUMARIN\TROXERUTIN
     Indication: PERIPHERAL VASCULAR DISORDER
     Route: 048
     Dates: start: 201401
  3. AAS [Concomitant]
     Active Substance: ASPIRIN
     Indication: CARDIOVASCULAR DISORDER
     Route: 048
     Dates: start: 1985
  4. LANTUS SOLOSTAR [Suspect]
     Active Substance: INSULIN GLARGINE
     Indication: TYPE 2 DIABETES MELLITUS
     Dosage: THERAPY END DATE CAPTURED AS PER NARRATIVE
     Route: 058
     Dates: start: 201307, end: 20130729
  5. TRAVATAN [Concomitant]
     Active Substance: TRAVOPROST
     Indication: INTRAOCULAR PRESSURE TEST
  6. DIAZEPAM. [Concomitant]
     Active Substance: DIAZEPAM
     Indication: INSOMNIA
     Route: 048
     Dates: start: 2006
  7. VENALOT [Concomitant]
     Active Substance: COUMARIN\TROXERUTIN
     Indication: PERIPHERAL VASCULAR DISORDER
  8. INSULIN, REGULAR [Concomitant]
     Active Substance: INSULIN NOS
     Indication: DIABETES MELLITUS
  9. LANTUS SOLOSTAR [Suspect]
     Active Substance: INSULIN GLARGINE
     Indication: TYPE 2 DIABETES MELLITUS
     Route: 058
     Dates: start: 201401, end: 201402
  10. METFORMIN [Concomitant]
     Active Substance: METFORMIN HYDROCHLORIDE
     Indication: DIABETES MELLITUS
     Route: 048
  11. ATENOLOL. [Concomitant]
     Active Substance: ATENOLOL
     Indication: HYPERTENSION
     Route: 048
     Dates: start: 2011
  12. ALL OTHER THERAPEUTIC PRODUCTS [Concomitant]
     Active Substance: UNSPECIFIED INGREDIENT
     Indication: CARDIOVASCULAR DISORDER
     Route: 048
     Dates: start: 2011
  13. SOLOSTAR [Concomitant]
     Active Substance: DEVICE
     Indication: DIABETES MELLITUS
     Dosage: DOSE + FREQUENCY: 24 IU PER DAYDIVIDED IN 8 IU S BETWEEN MEALS
     Dates: start: 20141001
  14. ALL OTHER THERAPEUTIC PRODUCTS [Concomitant]
     Active Substance: UNSPECIFIED INGREDIENT
     Route: 048
     Dates: start: 2013
  15. APIDRA SOLOSTAR [Suspect]
     Active Substance: INSULIN GLULISINE
     Indication: DIABETES MELLITUS
     Route: 058
     Dates: start: 20141001
  16. DAFLON [Concomitant]
     Active Substance: DIOSMIN\HESPERIDIN
     Indication: CARDIOVASCULAR DISORDER
     Route: 048
     Dates: start: 2013
  17. INDAPAMIDE. [Concomitant]
     Active Substance: INDAPAMIDE
     Indication: RENAL DISORDER
     Route: 048
     Dates: start: 2007
  18. CLIKSTAR [Concomitant]
     Active Substance: CLIKSTAR
     Indication: DEVICE THERAPY
     Dates: start: 2013, end: 201307
  19. SOLOSTAR [Suspect]
     Active Substance: DEVICE
     Indication: DEVICE THERAPY
     Dates: start: 20141001
  20. DEVICE NOS [Concomitant]
     Active Substance: DEVICE
  21. CAPTOPRIL. [Concomitant]
     Active Substance: CAPTOPRIL
     Indication: HYPERTENSION
     Route: 048
     Dates: start: 2008
  22. AMLODIPINE [Concomitant]
     Active Substance: AMLODIPINE BESYLATE
     Indication: HYPERTENSION
     Route: 048
     Dates: start: 2008

REACTIONS (23)
  - Pain in extremity [Recovered/Resolved]
  - Hyperglycaemia [Recovered/Resolved]
  - Limb discomfort [Recovered/Resolved]
  - Weight decreased [Not Recovered/Not Resolved]
  - Product odour abnormal [Unknown]
  - Peripheral swelling [Recovered/Resolved]
  - Visual acuity reduced [Not Recovered/Not Resolved]
  - Application site haemorrhage [Not Recovered/Not Resolved]
  - Eye irritation [Recovering/Resolving]
  - Musculoskeletal stiffness [Recovered/Resolved]
  - Application site discolouration [Not Recovered/Not Resolved]
  - Colour blindness acquired [Recovering/Resolving]
  - Drug ineffective [Unknown]
  - Fatigue [Recovered/Resolved]
  - Eye pain [Recovering/Resolving]
  - Eye swelling [Not Recovered/Not Resolved]
  - Application site discomfort [Not Recovered/Not Resolved]
  - Extra dose administered [Unknown]
  - Vision blurred [Recovered/Resolved]
  - Vitreous floaters [Recovering/Resolving]
  - Ocular hyperaemia [Recovered/Resolved]
  - Vision blurred [Recovering/Resolving]
  - Somnolence [Recovered/Resolved]

NARRATIVE: CASE EVENT DATE: 2013
